FAERS Safety Report 6712903-3 (Version None)
Quarter: 2010Q2

REPORT INFORMATION
  Report Type: 
  Country: None (occurrence: None)
  Receive Date: 20100505
  Receipt Date: 20100505
  Transmission Date: 20101027
  Serious: Yes (Other)
  Sender: FDA-Public Use
  Company Number: None

PATIENT
  Sex: Female
  Weight: 63.6 kg

DRUGS (4)
  1. NIASPAN [Suspect]
     Indication: BLOOD CHOLESTEROL INCREASED
     Dosage: 1,000MG 1 A DAY BEDTIME W/SNACK
     Dates: start: 20100424, end: 20100425
  2. TOPROL-XL [Concomitant]
  3. QUINAPRIL [Concomitant]
  4. LEXAPRO [Concomitant]

REACTIONS (12)
  - ABDOMINAL PAIN UPPER [None]
  - BURNING SENSATION [None]
  - ERYTHEMA [None]
  - FEAR [None]
  - FEELING ABNORMAL [None]
  - FLUSHING [None]
  - HEART RATE INCREASED [None]
  - NAUSEA [None]
  - OEDEMA PERIPHERAL [None]
  - PAIN OF SKIN [None]
  - PANIC REACTION [None]
  - SKIN WARM [None]
